FAERS Safety Report 8773406 (Version 2)
Quarter: 2012Q4

REPORT INFORMATION
  Report Type: 
  Country: US (occurrence: US)
  Receive Date: 20120907
  Receipt Date: 20121106
  Transmission Date: 20130627
  Serious: Yes (Other)
  Sender: FDA-Public Use
  Company Number: US-JNJFOC-20120901177

PATIENT
  Age: 71 Year
  Sex: Female
  Weight: 93.9 kg

DRUGS (3)
  1. XARELTO [Suspect]
     Indication: CEREBROVASCULAR ACCIDENT PROPHYLAXIS
     Route: 048
     Dates: start: 20120606, end: 20120915
  2. XARELTO [Suspect]
     Indication: ATRIAL FIBRILLATION
     Route: 048
     Dates: start: 20120606, end: 20120915
  3. TIKOSYN [Suspect]
     Indication: ATRIAL FIBRILLATION
     Dates: start: 20120606

REACTIONS (1)
  - Atrial thrombosis [Recovered/Resolved]
